FAERS Safety Report 26156834 (Version 1)
Quarter: 2025Q4

REPORT INFORMATION
  Report Type: Spontaneous
  Country: JP (occurrence: JP)
  Receive Date: 20251215
  Receipt Date: 20251215
  Transmission Date: 20260118
  Serious: Yes (Death)
  Sender: IDORSIA PHARMACEUTICALS
  Company Number: JP-IDORSIA-012893-2025-JP

PATIENT
  Age: 89 Year
  Sex: Female

DRUGS (10)
  1. QUVIVIQ [Suspect]
     Active Substance: DARIDOREXANT
     Indication: Insomnia
     Dosage: 50 MG, QD
     Route: 048
     Dates: start: 20251203, end: 20251204
  2. DONEPEZIL [Concomitant]
     Active Substance: DONEPEZIL
  3. MEMANTINE [Concomitant]
     Active Substance: MEMANTINE
  4. QUETIAPINE [Concomitant]
     Active Substance: QUETIAPINE
  5. CALCIUM CARBONATE\CHOLECALCIFEROL\MAGNESIUM CARBONATE [Concomitant]
     Active Substance: CALCIUM CARBONATE\CHOLECALCIFEROL\MAGNESIUM CARBONATE
  6. DENOSUMAB [Concomitant]
     Active Substance: DENOSUMAB
  7. URAPIDIL [Concomitant]
     Active Substance: URAPIDIL
  8. AMLODIPINE [Concomitant]
     Active Substance: AMLODIPINE BESYLATE
  9. MIYA-BM [Concomitant]
     Active Substance: CLOSTRIDIUM BUTYRICUM SPORES STRAIN M-55
  10. MAGNESIUM OXIDE [Concomitant]
     Active Substance: MAGNESIUM OXIDE

REACTIONS (1)
  - Cardiac arrest [Fatal]

NARRATIVE: CASE EVENT DATE: 20251205
